FAERS Safety Report 24028573 (Version 1)
Quarter: 2024Q2

REPORT INFORMATION
  Report Type: Spontaneous
  Country: IL (occurrence: IL)
  Receive Date: 20240628
  Receipt Date: 20240628
  Transmission Date: 20240716
  Serious: Yes (Hospitalization)
  Sender: FDA-Public Use
  Company Number: IL-ROCHE-10000008874

PATIENT
  Age: 72 Year
  Sex: Female

DRUGS (3)
  1. VABYSMO [Suspect]
     Active Substance: FARICIMAB\FARICIMAB-SVOA
     Indication: Neovascular age-related macular degeneration
     Route: 065
  2. AVASTIN [Suspect]
     Active Substance: BEVACIZUMAB
     Indication: Product used for unknown indication
     Route: 065
     Dates: start: 202204
  3. AFLIBERCEPT [Suspect]
     Active Substance: AFLIBERCEPT
     Indication: Product used for unknown indication
     Route: 065
     Dates: start: 202204

REACTIONS (1)
  - Endophthalmitis [Unknown]
